FAERS Safety Report 10195901 (Version 2)
Quarter: 2014Q2

REPORT INFORMATION
  Report Type: Spontaneous
  Country: US (occurrence: US)
  Receive Date: 20140527
  Receipt Date: 20140527
  Transmission Date: 20141212
  Serious: No
  Sender: FDA-Public Use
  Company Number: US-009507513-1405USA009675

PATIENT
  Sex: 0

DRUGS (3)
  1. NASONEX [Suspect]
     Indication: NASAL POLYPS
     Dosage: UNKNOWN; 17G, 120 METERED SPRAYS
  2. NASONEX [Suspect]
     Indication: HYPERSENSITIVITY
  3. NASONEX [Suspect]
     Indication: ASTHMA

REACTIONS (3)
  - Intentional product misuse [Unknown]
  - Inappropriate schedule of drug administration [Unknown]
  - Product container issue [Unknown]
